FAERS Safety Report 20834574 (Version 2)
Quarter: 2022Q2

REPORT INFORMATION
  Report Type: Spontaneous
  Country: US (occurrence: US)
  Receive Date: 20220516
  Receipt Date: 20220519
  Transmission Date: 20220721
  Serious: No
  Sender: FDA-Public Use
  Company Number: US-JNJFOC-20220526215

PATIENT
  Age: 26 Year
  Sex: Female

DRUGS (1)
  1. SIMPONI [Suspect]
     Active Substance: GOLIMUMAB
     Indication: Psoriatic arthropathy
     Route: 058
     Dates: start: 20220329, end: 20220511

REACTIONS (3)
  - Drug ineffective [Unknown]
  - Incorrect dose administered [Unknown]
  - Off label use [Unknown]
